FAERS Safety Report 23699908 (Version 2)
Quarter: 2024Q2

REPORT INFORMATION
  Report Type: Spontaneous
  Country: SK (occurrence: SK)
  Receive Date: 20240403
  Receipt Date: 20240607
  Transmission Date: 20240716
  Serious: No
  Sender: FDA-Public Use
  Company Number: SK-ALK-ABELLO A/S-2024AA001393

PATIENT

DRUGS (1)
  1. AMBROSIA ARTEMISIIFOLIA POLLEN [Suspect]
     Active Substance: AMBROSIA ARTEMISIIFOLIA POLLEN
     Indication: Product used for unknown indication
     Dosage: 12 SQ
     Route: 060
     Dates: start: 20240219, end: 20240223

REACTIONS (3)
  - Goitre [Recovered/Resolved]
  - Dysphagia [Recovered/Resolved]
  - Respiratory disorder [Recovered/Resolved]

NARRATIVE: CASE EVENT DATE: 20240222
